FAERS Safety Report 5063578-3 (Version None)
Quarter: 2006Q3

REPORT INFORMATION
  Report Type: 
  Country: None (occurrence: None)
  Receive Date: 20060724
  Receipt Date: 20060606
  Transmission Date: 20061208
  Serious: Yes (Death, Hospitalization)
  Sender: FDA-Public Use
  Company Number: 2006087886

PATIENT
  Age: 62 Year
  Sex: Female
  Weight: 58.9676 kg

DRUGS (2)
  1. NORVASC [Suspect]
     Indication: DRUG USE FOR UNKNOWN INDICATION
     Dosage: 5 MG (5 MG, FREQUENCY:  QD INTERVAL:  EVERY DAY)
     Dates: start: 20040901
  2. DRUG (DRUG) [Concomitant]

REACTIONS (11)
  - APHASIA [None]
  - BRAIN OEDEMA [None]
  - CEREBRAL HAEMORRHAGE [None]
  - CEREBROVASCULAR ACCIDENT [None]
  - EMBOLISM [None]
  - HAEMORRHAGIC INFARCTION [None]
  - LOSS OF CONSCIOUSNESS [None]
  - MONOPLEGIA [None]
  - OVERDOSE [None]
  - RESPIRATORY DEPRESSION [None]
  - UNRESPONSIVE TO STIMULI [None]
